FAERS Safety Report 7936833 (Version 6)
Quarter: 2016Q1

REPORT INFORMATION
  Report Type: Spontaneous
  Country: US (occurrence: US)
  Receive Date: 20110509
  Receipt Date: 20160120
  Transmission Date: 20160526
  Serious: Yes (Life-Threatening, Hospitalization, Disabling, Other)
  Sender: FDA-Public Use
  Company Number: US-BAYER-2011-004392

PATIENT
  Age: 56 Year
  Sex: Male

DRUGS (9)
  1. VITAMIN D [Concomitant]
     Active Substance: CHOLECALCIFEROL
     Dosage: 5000 IU, UNK
  2. ALCOHOL WIPE [Suspect]
     Active Substance: ISOPROPYL ALCOHOL
     Dosage: UNK
     Dates: end: 20110108
  3. BETASERON [Suspect]
     Active Substance: INTERFERON BETA-1B
     Indication: RELAPSING-REMITTING MULTIPLE SCLEROSIS
     Dosage: 1 DF, QOD
     Route: 058
     Dates: start: 2007, end: 201101
  4. FLOMAX [Concomitant]
     Active Substance: TAMSULOSIN HYDROCHLORIDE
  5. BETASERON [Suspect]
     Active Substance: INTERFERON BETA-1B
     Indication: MULTIPLE SCLEROSIS
  6. METHYLPREDNISOLONE. [Concomitant]
     Active Substance: METHYLPREDNISOLONE
     Dosage: UNK
  7. LEVAQUIN [Concomitant]
     Active Substance: LEVOFLOXACIN
  8. TYSABRI [Concomitant]
     Active Substance: NATALIZUMAB
     Indication: MULTIPLE SCLEROSIS
     Dosage: UNK
  9. METHYLPREDNISOLONE. [Concomitant]
     Active Substance: METHYLPREDNISOLONE
     Dosage: UNK
     Dates: start: 201007, end: 2010

REACTIONS (25)
  - Tremor [Recovered/Resolved]
  - Intestinal obstruction [None]
  - Injection site pain [None]
  - Weight decreased [None]
  - Functional gastrointestinal disorder [None]
  - Emotional distress [None]
  - Sepsis [None]
  - Muscular weakness [None]
  - Injection site discharge [None]
  - Pyrexia [None]
  - Abdominal distension [None]
  - Fluid retention [None]
  - Urinary retention [None]
  - Bladder dysfunction [None]
  - Physical disability [None]
  - Fall [Recovered/Resolved]
  - Adverse event [None]
  - Injection site cellulitis [Unknown]
  - Multiple sclerosis [None]
  - Injury [None]
  - Erythema [None]
  - Pain [None]
  - Abdominal pain [None]
  - Musculoskeletal disorder [None]
  - Anxiety [None]

NARRATIVE: CASE EVENT DATE: 201012
